FAERS Safety Report 8318266-4 (Version None)
Quarter: 2012Q2

REPORT INFORMATION
  Report Type: 
  Country: None (occurrence: None)
  Receive Date: 20120427
  Receipt Date: 20120420
  Transmission Date: 20120825
  Serious: Yes (Other)
  Sender: FDA-Public Use
  Company Number: HR-ROCHE-1061592

PATIENT
  Age: 76 Year
  Sex: Female

DRUGS (10)
  1. DOXORUBICIN HCL [Suspect]
     Indication: NON-HODGKIN'S LYMPHOMA
     Route: 042
     Dates: start: 20111116
  2. OKSAZEPAM [Concomitant]
     Indication: DEPRESSION
     Route: 048
  3. MABTHERA [Suspect]
     Indication: NON-HODGKIN'S LYMPHOMA
     Route: 042
     Dates: start: 20111116
  4. VINCRISTINE SULFATE [Suspect]
     Indication: NON-HODGKIN'S LYMPHOMA
     Route: 042
     Dates: start: 20111116
  5. CYCLOPHOSPHAMIDE [Suspect]
     Indication: NON-HODGKIN'S LYMPHOMA
     Route: 042
     Dates: start: 20111116
  6. ISMN [Concomitant]
     Indication: HYPERTENSION
     Route: 048
  7. LISINOPRIL [Concomitant]
     Indication: HYPERTENSION
     Route: 048
  8. LORAZEPAM [Concomitant]
     Indication: DEPRESSION
     Route: 048
  9. MIRTAZAPINE [Concomitant]
     Indication: DEPRESSION
     Route: 048
  10. ZOLPIDEM TARTRATE [Concomitant]
     Indication: DEPRESSION
     Route: 048

REACTIONS (7)
  - PARAESTHESIA [None]
  - CONSTIPATION [None]
  - RESPIRATORY TRACT INFECTION [None]
  - MYALGIA [None]
  - MUSCULAR WEAKNESS [None]
  - LEUKOPENIA [None]
  - NEUTROPENIA [None]
